FAERS Safety Report 5392883-6 (Version None)
Quarter: 2007Q3

REPORT INFORMATION
  Report Type: 
  Country: None (occurrence: None)
  Receive Date: 20070721
  Receipt Date: 20070710
  Transmission Date: 20080115
  Serious: Yes (Other)
  Sender: FDA-Public Use
  Company Number: BR-PFIZER INC-2007057774

PATIENT
  Sex: Female
  Weight: 70 kg

DRUGS (5)
  1. DETRUSITOL [Suspect]
     Indication: MICTURITION URGENCY
     Route: 048
  2. SUSTRATE [Concomitant]
  3. PLAVIX [Concomitant]
  4. ADALAT [Concomitant]
  5. ATENOLOL [Concomitant]

REACTIONS (1)
  - STENT PLACEMENT [None]
